FAERS Safety Report 8999481 (Version 1)
Quarter: 2013Q1

REPORT INFORMATION
  Report Type: Spontaneous
  Country: FR (occurrence: FR)
  Receive Date: 20130103
  Receipt Date: 20130103
  Transmission Date: 20140127
  Serious: Yes (Hospitalization)
  Sender: FDA-Public Use
  Company Number: FR-GLAXOSMITHKLINE-B0855223A

PATIENT
  Age: 92 Year
  Sex: Female

DRUGS (16)
  1. SPIRIVA [Suspect]
     Indication: PRODUCT USED FOR UNKNOWN INDICATION
     Dosage: 18MCG PER DAY
     Route: 055
     Dates: start: 20121013
  2. ADARTREL [Concomitant]
     Indication: PRODUCT USED FOR UNKNOWN INDICATION
     Dosage: 2.5MG PER DAY
     Route: 048
  3. TAHOR [Concomitant]
     Indication: PRODUCT USED FOR UNKNOWN INDICATION
     Dosage: 20MG PER DAY
     Route: 048
  4. INEXIUM [Concomitant]
     Indication: PRODUCT USED FOR UNKNOWN INDICATION
     Dosage: 40MG PER DAY
     Route: 048
  5. CALCIDOSE [Concomitant]
     Dosage: 500MG TWICE PER DAY
  6. SPECIAFOLDINE [Concomitant]
     Dosage: 5MG PER DAY
  7. CORDARONE [Concomitant]
     Dosage: 200MG PER DAY
  8. FORLAX [Concomitant]
     Dosage: 10G PER DAY
  9. FLIXOTIDE [Concomitant]
     Dosage: 500MG TWICE PER DAY
  10. LEXOMIL [Concomitant]
     Dosage: 3MG PER DAY
  11. ROCEPHINE [Concomitant]
     Indication: PULMONARY EMBOLISM
     Dates: start: 20121012
  12. LASILIX [Concomitant]
     Dosage: 20MG PER DAY
  13. SEREVENT [Suspect]
     Indication: PRODUCT USED FOR UNKNOWN INDICATION
     Dosage: 50MCG TWICE PER DAY
     Route: 055
     Dates: start: 20121012
  14. PREVISCAN [Suspect]
     Indication: PRODUCT USED FOR UNKNOWN INDICATION
     Dosage: 20MG PER DAY
     Route: 048
     Dates: end: 20121017
  15. PARACETAMOL [Suspect]
     Indication: PRODUCT USED FOR UNKNOWN INDICATION
     Route: 048
     Dates: start: 20121012
  16. AMOXICILLINE + AC CLAVULANIQUE [Suspect]
     Indication: LUNG INFECTION
     Route: 048
     Dates: start: 20121012

REACTIONS (1)
  - International normalised ratio increased [Recovered/Resolved]
